FAERS Safety Report 4566696-9 (Version None)
Quarter: 2005Q1

REPORT INFORMATION
  Report Type: 
  Country: None (occurrence: None)
  Receive Date: 20050201
  Receipt Date: 20050121
  Transmission Date: 20050727
  Serious: Yes (Hospitalization, Other)
  Sender: FDA-Public Use
  Company Number: PHNU2005DE00626

PATIENT
  Sex: Male

DRUGS (2)
  1. CLOZARIL [Suspect]
     Indication: SCHIZOPHRENIA
     Route: 048
  2. INSULIN [Suspect]
     Indication: DIABETES MELLITUS
     Dosage: UNK, UNK

REACTIONS (4)
  - ACIDOSIS [None]
  - BLOOD GLUCOSE INCREASED [None]
  - BLOOD PH DECREASED [None]
  - DIABETES MELLITUS INADEQUATE CONTROL [None]
